FAERS Safety Report 6079460-9 (Version None)
Quarter: 2009Q1

REPORT INFORMATION
  Report Type: 
  Country: None (occurrence: None)
  Receive Date: 20090216
  Receipt Date: 20090204
  Transmission Date: 20090719
  Serious: Yes (Hospitalization)
  Sender: FDA-Public Use
  Company Number: ES-ELI_LILLY_AND_COMPANY-ES200902001916

PATIENT
  Age: 83 Year
  Sex: Female

DRUGS (3)
  1. FORTEO [Suspect]
     Indication: OSTEOPOROSIS
     Dosage: 20 UG, UNKNOWN
     Route: 058
     Dates: start: 20071201
  2. FORTEO [Suspect]
     Dosage: 20 UG, UNKNOWN
     Route: 058
  3. SINTROM [Concomitant]
     Indication: CARDIAC DISORDER

REACTIONS (2)
  - ANOREXIA [None]
  - HAEMATOCHEZIA [None]
